FAERS Safety Report 16568755 (Version 1)
Quarter: 2019Q3

REPORT INFORMATION
  Report Type: Spontaneous
  Country: GB (occurrence: GB)
  Receive Date: 20190713
  Receipt Date: 20190713
  Transmission Date: 20191004
  Serious: Yes (Hospitalization)
  Sender: FDA-Public Use
  Company Number: GB-TEVA-2019-GB-1075793

PATIENT
  Age: 38 Year
  Sex: Female

DRUGS (6)
  1. PROCYCLIDINE [Concomitant]
     Active Substance: PROCYCLIDINE
  2. PARACETAMOL [Concomitant]
     Active Substance: ACETAMINOPHEN
  3. QUETIAPINE. [Suspect]
     Active Substance: QUETIAPINE
     Indication: SCHIZOPHRENIA
     Dosage: AT NIGHT
     Route: 048
     Dates: start: 20181101, end: 20190612
  4. MIRTAZAPINE. [Concomitant]
     Active Substance: MIRTAZAPINE
  5. PREGABALIN. [Concomitant]
     Active Substance: PREGABALIN
  6. CAFFEINE. [Concomitant]
     Active Substance: CAFFEINE

REACTIONS (2)
  - Electrocardiogram QT prolonged [Recovered/Resolved]
  - Circulatory collapse [Unknown]

NARRATIVE: CASE EVENT DATE: 201906
